FAERS Safety Report 9850319 (Version 1)
Quarter: 2013Q4

REPORT INFORMATION
  Report Type: Spontaneous
  Country: US (occurrence: None)
  Receive Date: 20131226
  Receipt Date: 20131226
  Transmission Date: 20140711
  Serious: Yes (Hospitalization, Other)
  Sender: FDA-Public Use
  Company Number: PHEH2012US014093

PATIENT
  Age: 80 Year
  Sex: Female

DRUGS (12)
  1. DIOVAN (VALSARTAN) [Suspect]
  2. DIOVAN HCT (VALSARTAN, HYDROCHLOROTHIAZIDE) UNKNOWN [Suspect]
     Dosage: 1 DF (VALS 320 MG, HYDR 25 MG), QD
  3. TOPROL (METOPROLOL SUCCINATE) [Concomitant]
  4. CLONIDINE (CLONIDINE) [Concomitant]
  5. CLONIDINE (CLONIDINE) [Concomitant]
  6. LABETALOL (LABETALOL) [Concomitant]
  7. ATENOLOL (ATENOLOL) [Concomitant]
  8. LORAZEPAM (LORAZEPAM) [Concomitant]
  9. SPIRONOLACTONE (SPIRONOLACTONE) [Concomitant]
  10. COD-LIVER OIL (COD-LIVER OIL) [Concomitant]
  11. ALOE VERA (ALOE VERA) [Concomitant]
  12. CEFDINIR (CEFDINIR) [Concomitant]

REACTIONS (4)
  - Hypertension [None]
  - Headache [None]
  - Nausea [None]
  - Abdominal pain upper [None]
